FAERS Safety Report 5065460-4 (Version None)
Quarter: 2006Q3

REPORT INFORMATION
  Report Type: 
  Country: None (occurrence: None)
  Receive Date: 20060706
  Receipt Date: 20050421
  Transmission Date: 20061208
  Serious: Yes (Death)
  Sender: FDA-Public Use
  Company Number: 1795

PATIENT
  Sex: Female
  Weight: 136.0791 kg

DRUGS (1)
  1. AVINZA [Suspect]

REACTIONS (1)
  - DEATH [None]
